FAERS Safety Report 4753584-8 (Version None)
Quarter: 2005Q3

REPORT INFORMATION
  Report Type: 
  Country: None (occurrence: None)
  Receive Date: 20050826
  Receipt Date: 20050818
  Transmission Date: 20060218
  Serious: Yes (Death)
  Sender: FDA-Public Use
  Company Number: US-JNJFOC-20050804513

PATIENT

DRUGS (3)
  1. DOXIL [Suspect]
     Indication: DRUG USE FOR UNKNOWN INDICATION
     Route: 042
  2. VINCRISTINE [Concomitant]
  3. DEXAMETHASONE [Concomitant]

REACTIONS (1)
  - PNEUMOCYSTIS JIROVECI INFECTION [None]
